FAERS Safety Report 6126424-2 (Version None)
Quarter: 2009Q1

REPORT INFORMATION
  Report Type: 
  Country: None (occurrence: None)
  Receive Date: 20090320
  Receipt Date: 20090311
  Transmission Date: 20090719
  Serious: Yes (Life-Threatening, Hospitalization, Other)
  Sender: FDA-Public Use
  Company Number: JP-BAYER-200910662BYL

PATIENT
  Age: 75 Year
  Sex: Female
  Weight: 55 kg

DRUGS (8)
  1. CIPROXAN-I.V. [Suspect]
     Indication: BRONCHITIS
     Dosage: TOTAL DAILY DOSE: 600 MG  UNIT DOSE: 300 MG
     Route: 042
     Dates: start: 20090206, end: 20090208
  2. ZITHROMAX [Suspect]
     Indication: NASOPHARYNGITIS
     Route: 048
     Dates: start: 20090202, end: 20090203
  3. PL [Suspect]
     Indication: NASOPHARYNGITIS
     Route: 048
     Dates: start: 20090202, end: 20090203
  4. LOXOMARIN [Suspect]
     Route: 048
     Dates: start: 20090203, end: 20090209
  5. ZESULAN [Concomitant]
     Route: 048
     Dates: start: 20090203
  6. GLYCYRON [Concomitant]
     Indication: LIVER DISORDER
     Route: 048
     Dates: start: 20081120, end: 20090206
  7. MUCOSTA [Concomitant]
     Route: 048
     Dates: start: 20090203, end: 20090208
  8. KAKKON-TO [Concomitant]
     Indication: NASOPHARYNGITIS
     Route: 048
     Dates: start: 20090202, end: 20090203

REACTIONS (9)
  - DERMATITIS BULLOUS [None]
  - DISSEMINATED INTRAVASCULAR COAGULATION [None]
  - ENANTHEMA [None]
  - HYPOXIA [None]
  - MELAENA [None]
  - MUCOCUTANEOUS RASH [None]
  - ORAL MUCOSAL ERUPTION [None]
  - RESTLESSNESS [None]
  - STEVENS-JOHNSON SYNDROME [None]
